FAERS Safety Report 10986024 (Version 1)
Quarter: 2015Q1

REPORT INFORMATION
  Report Type: Spontaneous
  Country: US (occurrence: None)
  Receive Date: 20150324
  Receipt Date: 20150324
  Transmission Date: 20150721
  Serious: Yes (Hospitalization)
  Sender: FDA-Public Use
  Company Number: 2014STPI000446

PATIENT
  Age: 13 Year
  Sex: Female
  Weight: 88 kg

DRUGS (5)
  1. VINCRISTINE SULFATE (VINCRISTINE SULFATE) [Suspect]
     Active Substance: VINCRISTINE SULFATE
     Indication: ACUTE LYMPHOCYTIC LEUKAEMIA
     Route: 042
     Dates: start: 20140828, end: 20140828
  2. ONCASPAR [Suspect]
     Active Substance: PEGASPARGASE
     Indication: LYMPHOCYTIC LEUKAEMIA
     Route: 042
     Dates: start: 20140714, end: 20140714
  3. SULFAMETHOXAZOLE AND TRIMETHOPRIM (SULFAMETHOXAZOLE, TRIMETHOPRIM) [Concomitant]
  4. ZOFRAN (ONDANSETRON HYDROCHLORIDE) [Concomitant]
  5. METHOTREXATE SODIUM (METHOTREXATE SODIUM) [Suspect]
     Active Substance: METHOTREXATE SODIUM
     Indication: ACUTE LYMPHOCYTIC LEUKAEMIA
     Route: 037
     Dates: start: 20140828, end: 20140828

REACTIONS (2)
  - Anaemia [None]
  - Hypersensitivity [None]

NARRATIVE: CASE EVENT DATE: 20140828
